FAERS Safety Report 6272760-9 (Version None)
Quarter: 2009Q3

REPORT INFORMATION
  Report Type: 
  Country: None (occurrence: None)
  Receive Date: 20090716
  Receipt Date: 20090716
  Transmission Date: 20100115
  Serious: Yes (Life-Threatening, Disabling)
  Sender: FDA-Public Use
  Company Number: None

PATIENT
  Age: 61 Year
  Sex: Male
  Weight: 75.7507 kg

DRUGS (2)
  1. AMBIEN [Suspect]
     Dosage: 5 MG. EVENING ONCE DAILY 10 MG ONCE DAILY
  2. AMBIEN [Suspect]
     Dosage: 5 MG. EVENING ONCE DAILY 10 MG ONCE DAILY

REACTIONS (3)
  - ABNORMAL SLEEP-RELATED EVENT [None]
  - AMNESIA [None]
  - SOMNAMBULISM [None]
